FAERS Safety Report 7162401-0 (Version None)
Quarter: 2010Q4

REPORT INFORMATION
  Report Type: 
  Country: None (occurrence: None)
  Receive Date: 20101215
  Receipt Date: 20101209
  Transmission Date: 20110411
  Serious: Yes (Death, Life-Threatening)
  Sender: FDA-Public Use
  Company Number: JP-SANOFI-AVENTIS-2010SA064360

PATIENT
  Age: 63 Year
  Sex: Female
  Weight: 50 kg

DRUGS (4)
  1. TAXOTERE [Suspect]
     Indication: GASTRIC CANCER
     Route: 041
     Dates: start: 20101005, end: 20101005
  2. TS-1 [Concomitant]
     Indication: GASTRIC CANCER
     Dosage: 120 MG FROM DAY 1 TO 14.
     Route: 048
     Dates: start: 20101005, end: 20101008
  3. KYTRIL [Concomitant]
     Indication: GASTRIC CANCER
     Route: 041
     Dates: start: 20101005, end: 20101005
  4. DECADRON [Concomitant]
     Indication: GASTRIC CANCER
     Route: 041
     Dates: start: 20101005, end: 20101005

REACTIONS (4)
  - BONE MARROW FAILURE [None]
  - DISSEMINATED INTRAVASCULAR COAGULATION [None]
  - HAEMATURIA [None]
  - SHOCK [None]
